FAERS Safety Report 7919510-5 (Version None)
Quarter: 2011Q4

REPORT INFORMATION
  Report Type: 
  Country: None (occurrence: None)
  Receive Date: 20111114
  Receipt Date: 20111027
  Transmission Date: 20120403
  Serious: Yes (Life-Threatening)
  Sender: FDA-Public Use
  Company Number: 1098467

PATIENT
  Age: 49 Year
  Sex: Male
  Weight: 68.05 kg

DRUGS (13)
  1. DOPAMINE HCL [Concomitant]
  2. HEPARIN [Concomitant]
  3. (NICORANDIL) [Concomitant]
  4. BUPRENORPHINE HCL [Concomitant]
  5. DOBUTAMINE HCL [Concomitant]
  6. VANCOMYCIN [Concomitant]
  7. DEXMEDETOMIDINE HYDROCHLORIDE [Suspect]
     Indication: SEDATION
     Dosage: 12 ML/HR, INTRAVENOUS (NOT OTHERWISE SPECIFIED)
     Route: 042
     Dates: start: 20111025, end: 20111026
  8. PIPERACILLIN AND TAZOBACTAM [Concomitant]
  9. (HUMAN INSULIN MIX) [Concomitant]
  10. (NORADRENALIN /00127502/) [Concomitant]
  11. AMIODARONE HCL [Concomitant]
  12. FUROSEMIDE [Concomitant]
  13. ISOSORBIDE DINITRATE [Concomitant]

REACTIONS (4)
  - VENTRICULAR TACHYCARDIA [None]
  - CARDIAC FAILURE [None]
  - LOSS OF CONSCIOUSNESS [None]
  - VENTRICULAR FIBRILLATION [None]
